FAERS Safety Report 6525713-7 (Version None)
Quarter: 2010Q1

REPORT INFORMATION
  Report Type: 
  Country: None (occurrence: None)
  Receive Date: 20100104
  Receipt Date: 20091223
  Transmission Date: 20100710
  Serious: No
  Sender: FDA-Public Use
  Company Number: US-MYLANLABS-2009S1021968

PATIENT
  Sex: Female

DRUGS (3)
  1. DRONEDARONE HCL [Suspect]
     Indication: ATRIAL FIBRILLATION
     Dates: start: 20090801, end: 20090830
  2. DRONEDARONE HCL [Suspect]
     Dates: start: 20090101
  3. METOPROLOL TARTRATE [Suspect]
     Indication: ATRIAL FIBRILLATION
     Route: 048
     Dates: end: 20090901

REACTIONS (7)
  - DRUG INEFFECTIVE [None]
  - DYSPNOEA [None]
  - ERYTHEMA [None]
  - LIVER FUNCTION TEST ABNORMAL [None]
  - PAIN [None]
  - PHOTOSENSITIVITY REACTION [None]
  - SWELLING [None]
